FAERS Safety Report 4577581-0 (Version None)
Quarter: 2005Q1

REPORT INFORMATION
  Report Type: 
  Country: None (occurrence: None)
  Receive Date: 20050208
  Receipt Date: 20050125
  Transmission Date: 20050727
  Serious: Yes (Other)
  Sender: FDA-Public Use
  Company Number: 2004S1000231

PATIENT
  Age: 33 Year
  Sex: Female

DRUGS (4)
  1. ACITRETIN (ACITRETIN) [Suspect]
     Indication: RASH PAPULAR
     Dosage: 20 MG; QD; PO
     Route: 048
     Dates: start: 20030101, end: 20040301
  2. ORAL CONTRACEPTIVE [Concomitant]
  3. OMEPRAZOLE [Concomitant]
  4. PULMICORT [Concomitant]

REACTIONS (3)
  - ABORTION SPONTANEOUS [None]
  - DRUG EXPOSURE DURING PREGNANCY [None]
  - PREGNANCY [None]
